FAERS Safety Report 20141214 (Version 9)
Quarter: 2022Q3

REPORT INFORMATION
  Report Type: Report from Study
  Country: US (occurrence: US)
  Receive Date: 20211202
  Receipt Date: 20220927
  Transmission Date: 20221027
  Serious: Yes (Hospitalization, Other)
  Sender: FDA-Public Use
  Company Number: US-BoehringerIngelheim-2020-BI-049777

PATIENT
  Age: 57 Year
  Sex: Male
  Weight: 73 kg

DRUGS (8)
  1. OFEV [Suspect]
     Active Substance: NINTEDANIB
     Indication: Idiopathic pulmonary fibrosis
     Route: 048
     Dates: start: 20211206
  2. OFEV [Suspect]
     Active Substance: NINTEDANIB
     Route: 048
     Dates: start: 20181201
  3. TYVASO [Suspect]
     Active Substance: TREPROSTINIL
     Indication: Pulmonary arterial hypertension
     Route: 055
     Dates: start: 20210416
  4. TYVASO [Suspect]
     Active Substance: TREPROSTINIL
     Dosage: 18-54 ?,
     Route: 055
     Dates: start: 2021, end: 20210507
  5. TYVASO [Suspect]
     Active Substance: TREPROSTINIL
     Route: 055
     Dates: end: 20210507
  6. TYVASO [Suspect]
     Active Substance: TREPROSTINIL
     Route: 055
  7. TYVASO [Suspect]
     Active Substance: TREPROSTINIL
     Route: 055
  8. TYVASO [Suspect]
     Active Substance: TREPROSTINIL
     Route: 055

REACTIONS (23)
  - Nephrolithiasis [Not Recovered/Not Resolved]
  - Syncope [Unknown]
  - Stent placement [Unknown]
  - Catheterisation cardiac [Unknown]
  - Idiopathic pulmonary fibrosis [Recovered/Resolved]
  - Diarrhoea [Not Recovered/Not Resolved]
  - Flatulence [Not Recovered/Not Resolved]
  - Cough [Not Recovered/Not Resolved]
  - Abdominal pain [Not Recovered/Not Resolved]
  - Cough [Unknown]
  - Abdominal discomfort [Unknown]
  - Abdominal pain upper [Unknown]
  - Vomiting [Not Recovered/Not Resolved]
  - Mental disorder [Unknown]
  - Cardiac disorder [Unknown]
  - Muscle strain [Unknown]
  - Dehydration [Recovering/Resolving]
  - Illness [Unknown]
  - Gastrointestinal disorder [Unknown]
  - Constipation [Unknown]
  - Tension headache [Unknown]
  - Abdominal distension [Not Recovered/Not Resolved]
  - Dyspepsia [Unknown]

NARRATIVE: CASE EVENT DATE: 20181201
